FAERS Safety Report 11433351 (Version 1)
Quarter: 2015Q3

REPORT INFORMATION
  Report Type: Spontaneous
  Country: US (occurrence: US)
  Receive Date: 20150830
  Receipt Date: 20150830
  Transmission Date: 20151125
  Serious: No
  Sender: FDA-Public Use
  Company Number: US-CAREFUSION 213 LLC-1041513

PATIENT
  Sex: Female

DRUGS (1)
  1. CHLORAPREP WITH TINT [Suspect]
     Active Substance: CHLORHEXIDINE GLUCONATE\ISOPROPYL ALCOHOL
     Indication: PREOPERATIVE CARE
     Route: 061
     Dates: start: 20150112, end: 20150112

REACTIONS (3)
  - Off label use [Recovered/Resolved]
  - Accidental exposure to product [Recovered/Resolved]
  - Eye pain [Recovered/Resolved]

NARRATIVE: CASE EVENT DATE: 20150112
